FAERS Safety Report 25309831 (Version 8)
Quarter: 2025Q4

REPORT INFORMATION
  Report Type: Report from Study
  Country: US (occurrence: US)
  Receive Date: 20250514
  Receipt Date: 20251228
  Transmission Date: 20260117
  Serious: Yes (Hospitalization, Other)
  Sender: ABBVIE
  Company Number: US-ABBVIE-6275979

PATIENT
  Age: 58 Year
  Sex: Female

DRUGS (4)
  1. RINVOQ [Suspect]
     Active Substance: UPADACITINIB
     Indication: Dermatitis atopic
     Route: 048
     Dates: start: 2023, end: 202503
  2. RINVOQ [Suspect]
     Active Substance: UPADACITINIB
     Indication: Dermatitis atopic
     Route: 048
     Dates: start: 202504, end: 202508
  3. RINVOQ [Suspect]
     Active Substance: UPADACITINIB
     Indication: Dermatitis atopic
     Route: 048
     Dates: start: 2022
  4. RINVOQ [Suspect]
     Active Substance: UPADACITINIB
     Indication: Dermatitis atopic
     Route: 048
     Dates: start: 20230213, end: 2023

REACTIONS (18)
  - Localised infection [Unknown]
  - Joint dislocation [Not Recovered/Not Resolved]
  - Swelling [Unknown]
  - Dermatitis atopic [Recovered/Resolved]
  - Acne cystic [Recovering/Resolving]
  - Joint dislocation [Recovered/Resolved]
  - Device related infection [Not Recovered/Not Resolved]
  - Weight decreased [Not Recovered/Not Resolved]
  - Hip arthroplasty [Unknown]
  - Ligament sprain [Unknown]
  - Impaired healing [Unknown]
  - Suicidal ideation [Recovered/Resolved]
  - Hepatic enzyme increased [Unknown]
  - Blood potassium decreased [Unknown]
  - Skin infection [Not Recovered/Not Resolved]
  - Wound [Not Recovered/Not Resolved]
  - Gait disturbance [Not Recovered/Not Resolved]
  - Glycosylated haemoglobin decreased [Not Recovered/Not Resolved]

NARRATIVE: CASE EVENT DATE: 20250101
